FAERS Safety Report 13411978 (Version 2)
Quarter: 2018Q1

REPORT INFORMATION
  Report Type: Spontaneous
  Country: US (occurrence: US)
  Receive Date: 20170406
  Receipt Date: 20180118
  Transmission Date: 20180508
  Serious: No
  Sender: FDA-Public Use
  Company Number: US-JNJFOC-20170316149

PATIENT
  Age: 24 Year
  Sex: Male

DRUGS (23)
  1. RISPERDAL [Suspect]
     Active Substance: RISPERIDONE
     Indication: MANIA
     Route: 048
     Dates: start: 20091201, end: 20091202
  2. RISPERDAL [Suspect]
     Active Substance: RISPERIDONE
     Indication: SCHIZOPHRENIA
     Route: 048
     Dates: start: 20091201, end: 20091202
  3. RISPERDAL CONSTA [Suspect]
     Active Substance: RISPERIDONE
     Indication: PRODUCT USED FOR UNKNOWN INDICATION
     Route: 030
  4. RISPERIDONE. [Suspect]
     Active Substance: RISPERIDONE
     Indication: SCHIZOPHRENIA
     Route: 048
     Dates: start: 20070402
  5. RISPERDAL [Suspect]
     Active Substance: RISPERIDONE
     Indication: AFFECTIVE DISORDER
     Dosage: VARYING DOSES, UNSPECIFIED, 01MG, 02MG, 03MG AND 04MG AND VARYING FREQUENCY(UNSPECIFIED/TWICE DAILY)
     Route: 048
     Dates: start: 20070402, end: 20091109
  6. RISPERDAL M-TAB [Suspect]
     Active Substance: RISPERIDONE
     Indication: SCHIZOPHRENIA
     Dosage: VARYING DOSES OF 01 MG AND 03 MG
     Route: 048
     Dates: start: 20100104, end: 20100108
  7. RISPERDAL [Suspect]
     Active Substance: RISPERIDONE
     Indication: SCHIZOPHRENIA
     Dosage: VARYING DOSES, UNSPECIFIED, 01MG, 02MG, 03MG AND 04MG AND VARYING FREQUENCY(UNSPECIFIED/TWICE DAILY)
     Route: 048
     Dates: start: 20070402, end: 20091109
  8. RISPERDAL [Suspect]
     Active Substance: RISPERIDONE
     Indication: SCHIZOPHRENIA
     Dosage: VARYING DOSES OF UNSPECIFIED DOSE AND 06 MG
     Route: 048
     Dates: start: 20110725, end: 20110930
  9. RISPERDAL M-TAB [Suspect]
     Active Substance: RISPERIDONE
     Indication: AFFECTIVE DISORDER
     Dosage: VARYING DOSES OF 01 MG AND 03 MG
     Route: 048
     Dates: start: 20100104, end: 20100108
  10. RISPERIDONE. [Suspect]
     Active Substance: RISPERIDONE
     Indication: SCHIZOPHRENIA
     Route: 048
     Dates: start: 20110527
  11. RISPERDAL [Suspect]
     Active Substance: RISPERIDONE
     Indication: MANIA
     Dosage: VARYING DOSES OF UNSPECIFIED DOSE AND 06 MG
     Route: 048
     Dates: start: 20110725, end: 20110930
  12. RISPERIDONE. [Suspect]
     Active Substance: RISPERIDONE
     Indication: AFFECTIVE DISORDER
     Route: 048
     Dates: start: 20070402
  13. RISPERDAL [Suspect]
     Active Substance: RISPERIDONE
     Indication: MANIA
     Dosage: VARYING DOSES, UNSPECIFIED, 01MG, 02MG, 03MG AND 04MG AND VARYING FREQUENCY(UNSPECIFIED/TWICE DAILY)
     Route: 048
     Dates: start: 20070402, end: 20091109
  14. RISPERDAL [Suspect]
     Active Substance: RISPERIDONE
     Indication: AFFECTIVE DISORDER
     Route: 048
     Dates: start: 20091201, end: 20091202
  15. RISPERDAL [Suspect]
     Active Substance: RISPERIDONE
     Indication: AFFECTIVE DISORDER
     Dosage: VARYING DOSES OF 03 MG AND 06 MG
     Route: 048
     Dates: start: 20100301, end: 20100416
  16. RISPERDAL [Suspect]
     Active Substance: RISPERIDONE
     Indication: SCHIZOPHRENIA
     Dosage: VARYING DOSES OF 03 MG AND 06 MG
     Route: 048
     Dates: start: 20100301, end: 20100416
  17. RISPERDAL M-TAB [Suspect]
     Active Substance: RISPERIDONE
     Indication: AFFECTIVE DISORDER
     Dosage: VARYING DOSES OF 03 MG AND 06 MG
     Route: 048
     Dates: start: 20110629, end: 20110707
  18. RISPERDAL M-TAB [Suspect]
     Active Substance: RISPERIDONE
     Indication: SCHIZOPHRENIA
     Dosage: VARYING DOSES OF 03 MG AND 06 MG
     Route: 048
     Dates: start: 20110629, end: 20110707
  19. RISPERDAL [Suspect]
     Active Substance: RISPERIDONE
     Indication: MANIA
     Dosage: VARYING DOSES OF 03 MG AND 06 MG
     Route: 048
     Dates: start: 20100301, end: 20100416
  20. RISPERDAL [Suspect]
     Active Substance: RISPERIDONE
     Indication: AFFECTIVE DISORDER
     Dosage: VARYING DOSES OF UNSPECIFIED DOSE AND 06 MG
     Route: 048
     Dates: start: 20110725, end: 20110930
  21. RISPERIDONE. [Suspect]
     Active Substance: RISPERIDONE
     Indication: AFFECTIVE DISORDER
     Route: 048
     Dates: end: 20110930
  22. RISPERIDONE. [Suspect]
     Active Substance: RISPERIDONE
     Indication: AFFECTIVE DISORDER
     Route: 048
     Dates: start: 20110527
  23. RISPERIDONE. [Suspect]
     Active Substance: RISPERIDONE
     Indication: SCHIZOPHRENIA
     Route: 048
     Dates: end: 20110930

REACTIONS (3)
  - Sedation [Unknown]
  - Gynaecomastia [Unknown]
  - Emotional disorder [Unknown]

NARRATIVE: CASE EVENT DATE: 20100416
